FAERS Safety Report 9929024 (Version 1)
Quarter: 2014Q1

REPORT INFORMATION
  Report Type: Spontaneous
  Country: US (occurrence: US)
  Receive Date: 20140227
  Receipt Date: 20140227
  Transmission Date: 20141002
  Serious: Yes (Hospitalization)
  Sender: FDA-Public Use
  Company Number: US-LUNDBECK-DKLU1097706

PATIENT
  Age: 13 Year
  Sex: Female

DRUGS (8)
  1. SABRIL (FOR ORAL SOLUTION) [Suspect]
     Indication: COMPLEX PARTIAL SEIZURES
     Route: 048
     Dates: start: 20140124
  2. SABRIL (FOR ORAL SOLUTION) [Suspect]
     Route: 048
  3. SABRIL (FOR ORAL SOLUTION) [Suspect]
     Route: 048
  4. SABRIL (FOR ORAL SOLUTION) [Suspect]
     Route: 048
  5. SABRIL (FOR ORAL SOLUTION) [Suspect]
     Route: 048
  6. ONFI [Concomitant]
     Indication: PRODUCT USED FOR UNKNOWN INDICATION
  7. KEPPRA [Concomitant]
     Indication: PRODUCT USED FOR UNKNOWN INDICATION
  8. BANZEL [Concomitant]
     Indication: PRODUCT USED FOR UNKNOWN INDICATION

REACTIONS (1)
  - Convulsion [Recovered/Resolved]
